FAERS Safety Report 21730158 (Version 6)
Quarter: 2023Q1

REPORT INFORMATION
  Report Type: Spontaneous
  Country: US (occurrence: US)
  Receive Date: 20221214
  Receipt Date: 20230110
  Transmission Date: 20230417
  Serious: No
  Sender: FDA-Public Use
  Company Number: US-AMGEN-USASP2022214571

PATIENT
  Age: 70 Year
  Sex: Female

DRUGS (3)
  1. NEULASTA [Suspect]
     Active Substance: PEGFILGRASTIM
     Indication: Cholangiocarcinoma
     Dosage: UNK
     Route: 065
  2. NEULASTA [Suspect]
     Active Substance: PEGFILGRASTIM
     Indication: Pancreatic carcinoma
  3. NEULASTA [Suspect]
     Active Substance: PEGFILGRASTIM
     Indication: Off label use

REACTIONS (2)
  - Device occlusion [Unknown]
  - Off label use [Unknown]

NARRATIVE: CASE EVENT DATE: 20221129
